FAERS Safety Report 20045166 (Version 12)
Quarter: 2022Q2

REPORT INFORMATION
  Report Type: Spontaneous
  Country: JP (occurrence: JP)
  Receive Date: 20211108
  Receipt Date: 20220415
  Transmission Date: 20220720
  Serious: Yes (Death, Life-Threatening, Hospitalization, Other)
  Sender: FDA-Public Use
  Company Number: JP-ONO-2021JP027539

PATIENT
  Age: 54 Year
  Sex: Male
  Weight: 42 kg

DRUGS (31)
  1. OPDIVO [Suspect]
     Active Substance: NIVOLUMAB
     Indication: Non-small cell lung cancer recurrent
     Dosage: 240 MILLIGRAM
     Route: 041
     Dates: start: 20210310, end: 20210310
  2. OPDIVO [Suspect]
     Active Substance: NIVOLUMAB
     Dosage: 240 MILLIGRAM
     Route: 041
     Dates: start: 20210407, end: 20210407
  3. OPDIVO [Suspect]
     Active Substance: NIVOLUMAB
     Dosage: 240 MILLIGRAM
     Route: 041
     Dates: start: 20210430, end: 20210430
  4. OPDIVO [Suspect]
     Active Substance: NIVOLUMAB
     Dosage: 240 MILLIGRAM
     Route: 041
     Dates: start: 20210514, end: 20210514
  5. YERVOY [Suspect]
     Active Substance: IPILIMUMAB
     Indication: Non-small cell lung cancer recurrent
     Dosage: 42.2 MILLIGRAM
     Route: 041
     Dates: start: 20210310, end: 20210310
  6. YERVOY [Suspect]
     Active Substance: IPILIMUMAB
     Dosage: 42.2 MILLIGRAM
     Route: 041
     Dates: start: 20210430, end: 20210430
  7. METFORMIN HYDROCHLORIDE [Concomitant]
     Active Substance: METFORMIN HYDROCHLORIDE
     Indication: Type 2 diabetes mellitus
     Dosage: 250 MG, Q12H
     Route: 048
     Dates: end: 20210315
  8. METFORMIN HYDROCHLORIDE [Concomitant]
     Active Substance: METFORMIN HYDROCHLORIDE
  9. METFORMIN HYDROCHLORIDE [Concomitant]
     Active Substance: METFORMIN HYDROCHLORIDE
  10. PRAVASTATIN SODIUM [Concomitant]
     Active Substance: PRAVASTATIN SODIUM
     Indication: Product used for unknown indication
     Dosage: 10 MG, EVERYDAY
     Route: 048
     Dates: end: 20210607
  11. ASPIRIN [Concomitant]
     Active Substance: ASPIRIN
     Indication: Angina pectoris
     Dosage: 100 MG, EVERYDAY
     Route: 048
     Dates: end: 20210630
  12. ASPIRIN [Concomitant]
     Active Substance: ASPIRIN
  13. ASPIRIN [Concomitant]
     Active Substance: ASPIRIN
  14. DILTIAZEM HYDROCHLORIDE [Concomitant]
     Active Substance: DILTIAZEM HYDROCHLORIDE
     Indication: Angina pectoris
     Dosage: 100 MG, EVERYDAY
     Route: 048
     Dates: end: 20210711
  15. DILTIAZEM HYDROCHLORIDE [Concomitant]
     Active Substance: DILTIAZEM HYDROCHLORIDE
  16. DILTIAZEM HYDROCHLORIDE [Concomitant]
     Active Substance: DILTIAZEM HYDROCHLORIDE
  17. LINAGLIPTIN [Concomitant]
     Active Substance: LINAGLIPTIN
     Indication: Type 2 diabetes mellitus
     Dosage: 5 MG, EVERYDAY
     Route: 048
     Dates: end: 20210531
  18. LINAGLIPTIN [Concomitant]
     Active Substance: LINAGLIPTIN
  19. LINAGLIPTIN [Concomitant]
     Active Substance: LINAGLIPTIN
  20. PIOGLITAZONE [Concomitant]
     Active Substance: PIOGLITAZONE
     Indication: Type 2 diabetes mellitus
     Dosage: 15 MG, EVERYDAY
     Route: 048
     Dates: end: 20210607
  21. PIOGLITAZONE [Concomitant]
     Active Substance: PIOGLITAZONE
  22. PIOGLITAZONE [Concomitant]
     Active Substance: PIOGLITAZONE
  23. LANSOPRAZOLE [Concomitant]
     Active Substance: LANSOPRAZOLE
     Indication: Gastric ulcer
     Dosage: 15 MG, EVERYDAY
     Route: 048
     Dates: end: 20210607
  24. LANSOPRAZOLE [Concomitant]
     Active Substance: LANSOPRAZOLE
  25. LANSOPRAZOLE [Concomitant]
     Active Substance: LANSOPRAZOLE
  26. NICORANDIL [Concomitant]
     Active Substance: NICORANDIL
     Indication: Angina pectoris
     Dosage: 5 MG, Q12H
     Route: 048
     Dates: end: 20210711
  27. NICORANDIL [Concomitant]
     Active Substance: NICORANDIL
  28. NICORANDIL [Concomitant]
     Active Substance: NICORANDIL
  29. BISOPROLOL FUMARATE [Concomitant]
     Active Substance: BISOPROLOL FUMARATE
     Indication: Angina pectoris
     Dosage: 0.75 MG, Q12H
     Route: 048
     Dates: end: 20210711
  30. BISOPROLOL FUMARATE [Concomitant]
     Active Substance: BISOPROLOL FUMARATE
  31. BISOPROLOL FUMARATE [Concomitant]
     Active Substance: BISOPROLOL FUMARATE

REACTIONS (8)
  - Drug eruption [Recovered/Resolved]
  - Immune-mediated hypothyroidism [Recovered/Resolved]
  - Ventricular fibrillation [Fatal]
  - Acute coronary syndrome [Unknown]
  - Decubitus ulcer [Unknown]
  - Immune-mediated lung disease [Not Recovered/Not Resolved]
  - Immune-mediated adrenal insufficiency [Recovering/Resolving]
  - Infusion related reaction [Recovered/Resolved]

NARRATIVE: CASE EVENT DATE: 20210310
